FAERS Safety Report 4465129-0 (Version None)
Quarter: 2004Q3

REPORT INFORMATION
  Report Type: 
  Country: None (occurrence: None)
  Receive Date: 20040928
  Receipt Date: 20040928
  Transmission Date: 20050211
  Serious: Yes (Hospitalization)
  Sender: FDA-Public Use
  Company Number: None

PATIENT
  Age: 62 Year
  Sex: Male
  Weight: 77.3 kg

DRUGS (14)
  1. METOPROLOL [Suspect]
     Indication: BLOOD PRESSURE
     Dosage: 50MG  BID  ORAL
     Route: 048
     Dates: start: 20040427, end: 20040609
  2. METOPROLOL [Suspect]
     Indication: HEART RATE INCREASED
     Dosage: 50MG  BID  ORAL
     Route: 048
     Dates: start: 20040427, end: 20040609
  3. DILTIAZEM [Suspect]
     Indication: BLOOD PRESSURE
     Dosage: 360MG  DAILY  ORAL
     Route: 048
     Dates: start: 20040427, end: 20040609
  4. ACETAMINOPHEN [Concomitant]
  5. CALCIUM CARBONATE TAB [Concomitant]
  6. ALBUTEROL [Concomitant]
  7. DARBEPOETIN ALFA [Concomitant]
  8. RECOMBINANT INJ [Concomitant]
  9. ENALAPRIL MALEATE TAB [Concomitant]
  10. FELODIPINE SA [Concomitant]
  11. GUAIFENESIN [Concomitant]
  12. IPRATROPIUM BR [Concomitant]
  13. LABETALOL HCL [Concomitant]
  14. OMEPRAZOLE [Concomitant]

REACTIONS (4)
  - HEART RATE DECREASED [None]
  - HYPOTENSION [None]
  - NODAL RHYTHM [None]
  - OVERDOSE [None]
